FAERS Safety Report 9832843 (Version 1)
Quarter: 2014Q1

REPORT INFORMATION
  Report Type: Spontaneous
  Country: JP (occurrence: FR)
  Receive Date: 20140121
  Receipt Date: 20140121
  Transmission Date: 20141002
  Serious: Yes (Other)
  Sender: FDA-Public Use
  Company Number: JP-WATSON-2014-00271

PATIENT
  Sex: Male
  Weight: 68 kg

DRUGS (1)
  1. RAPAFLO (WATSON LABORATORIES) [Suspect]
     Indication: BENIGN PROSTATIC HYPERPLASIA
     Dosage: 1 DF, QDNK
     Route: 048
     Dates: start: 20130312, end: 201305

REACTIONS (1)
  - Tendonitis [Recovered/Resolved]
